FAERS Safety Report 17796471 (Version 3)
Quarter: 2022Q1

REPORT INFORMATION
  Report Type: Spontaneous
  Country: DE (occurrence: DE)
  Receive Date: 20200518
  Receipt Date: 20220225
  Transmission Date: 20220423
  Serious: Yes (Other)
  Sender: FDA-Public Use
  Company Number: DE-AUROBINDO-AUR-APL-2020-024105

PATIENT
  Age: 39 Year
  Sex: Male

DRUGS (4)
  1. PANTOPRAZOLE [Suspect]
     Active Substance: PANTOPRAZOLE
     Indication: Gastrooesophageal reflux disease
     Dosage: UNK
     Route: 065
  2. SECUKINUMAB [Suspect]
     Active Substance: SECUKINUMAB
     Indication: Psoriasis
     Dosage: 300 MILLIGRAM
     Route: 058
  3. METHOTREXATE [Concomitant]
     Active Substance: METHOTREXATE
     Indication: Product used for unknown indication
     Dosage: UNK
     Route: 065
  4. PSORALEN [Concomitant]
     Active Substance: PSORALEN
     Indication: Product used for unknown indication
     Dosage: UNK
     Route: 065

REACTIONS (12)
  - Cutaneous lupus erythematosus [Recovered/Resolved]
  - Paradoxical drug reaction [Recovered/Resolved]
  - Skin lesion [Recovered/Resolved]
  - Arthralgia [Unknown]
  - Fatigue [Unknown]
  - Abdominal pain [Unknown]
  - Skin plaque [Recovered/Resolved]
  - Post inflammatory pigmentation change [Recovered/Resolved]
  - Cutaneous vasculitis [Recovered/Resolved]
  - Hyperkeratosis [Recovered/Resolved]
  - Parakeratosis [Recovered/Resolved]
  - Psoriasis [Recovered/Resolved]
